FAERS Safety Report 5246827-8 (Version None)
Quarter: 2007Q1

REPORT INFORMATION
  Report Type: 
  Country: None (occurrence: None)
  Receive Date: 20070226
  Receipt Date: 20070216
  Transmission Date: 20070707
  Serious: Yes (Other)
  Sender: FDA-Public Use
  Company Number: GB-PFIZER INC-2007013718

PATIENT
  Age: 64 Year
  Sex: Male

DRUGS (3)
  1. LIPITOR [Suspect]
     Route: 048
  2. WARFARIN SODIUM [Concomitant]
  3. ANALGESICS [Concomitant]

REACTIONS (2)
  - ERECTILE DYSFUNCTION [None]
  - POST VIRAL FATIGUE SYNDROME [None]
